FAERS Safety Report 14114101 (Version 2)
Quarter: 2017Q4

REPORT INFORMATION
  Report Type: Report from Study
  Country: TW (occurrence: TW)
  Receive Date: 20171023
  Receipt Date: 20171108
  Transmission Date: 20180321
  Serious: Yes (Death, Other)
  Sender: FDA-Public Use
  Company Number: TW-SUN PHARMACEUTICAL INDUSTRIES LTD-2017RR-152853

PATIENT
  Age: 3 Year
  Sex: Male

DRUGS (17)
  1. 6-MERCAPTOPURINE [Suspect]
     Active Substance: MERCAPTOPURINE
     Indication: ACUTE LYMPHOCYTIC LEUKAEMIA
     Dosage: 20 MG/M2 ON DAYS 1-28 AND 50-77
     Route: 065
  2. VINCRISTINE [Suspect]
     Active Substance: VINCRISTINE
     Dosage: 2 MG/M2, MAINTENANCE
     Route: 042
  3. CYTARABINE. [Suspect]
     Active Substance: CYTARABINE
     Indication: ACUTE LYMPHOCYTIC LEUKAEMIA
     Dosage: 18, 24, 30, OR 36MG; ON DAYS 1, 15, 50, 64
     Route: 037
  4. CYCLOPHOSPHAMIDE. [Suspect]
     Active Substance: CYCLOPHOSPHAMIDE
     Indication: ACUTE LYMPHOCYTIC LEUKAEMIA
     Dosage: 300 MG/M2, UNK
     Route: 042
  5. EPIRUBICIN [Suspect]
     Active Substance: EPIRUBICIN
     Indication: ACUTE LYMPHOCYTIC LEUKAEMIA
     Dosage: 20 MG/M2, ON DAYS 1, 8
     Route: 042
  6. METHOTREXATE. [Suspect]
     Active Substance: METHOTREXATE
     Dosage: 2.5 G/M^2, ON DAYS 1, 15, 50, 64
     Route: 042
  7. 6-MERCAPTOPURINE [Suspect]
     Active Substance: MERCAPTOPURINE
     Dosage: 60 MG/M2, MAINTENANCE
     Route: 065
  8. HYDROCORTISONE. [Suspect]
     Active Substance: HYDROCORTISONE
     Indication: ACUTE LYMPHOCYTIC LEUKAEMIA
     Dosage: 12, 16, 20, OR 24MG; ON DAYS 1, 15, 50, 64
     Route: 037
  9. METHOTREXATE. [Suspect]
     Active Substance: METHOTREXATE
     Dosage: 40 MG/M2, MAINTENANCE
     Route: 030
  10. HYDROCORTISONE. [Suspect]
     Active Substance: HYDROCORTISONE
     Dosage: 12, 16, 20 OR 24MG ON DAYS 1, 15
     Route: 037
  11. VINCRISTINE [Suspect]
     Active Substance: VINCRISTINE
     Indication: ACUTE LYMPHOCYTIC LEUKAEMIA
     Dosage: 1.5 MG/M2, ON DAYS 1, 8, 15, 22
     Route: 042
  12. METHOTREXATE. [Suspect]
     Active Substance: METHOTREXATE
     Indication: ACUTE LYMPHOCYTIC LEUKAEMIA
     Dosage: 6, 8, 10, OR 12MG ON DAYS 1, 15
     Route: 037
  13. CYTARABINE. [Suspect]
     Active Substance: CYTARABINE
     Dosage: 18, 24, 30, OR 36MG; ON DAYS 1, 15
     Route: 037
  14. METHOTREXATE. [Suspect]
     Active Substance: METHOTREXATE
     Dosage: UNK
  15. CYTARABINE. [Suspect]
     Active Substance: CYTARABINE
     Dosage: 300 MG/M2, MAINTENANCE
     Route: 042
  16. PREDNISOLONE. [Suspect]
     Active Substance: PREDNISOLONE
     Indication: ACUTE LYMPHOCYTIC LEUKAEMIA
     Dosage: 40 MG/M2, ON DAYS 1-28
     Route: 065
  17. DEXAMETHASONE. [Suspect]
     Active Substance: DEXAMETHASONE
     Indication: ACUTE LYMPHOCYTIC LEUKAEMIA
     Dosage: 8 MG, DAILY 6-MERCAPTOPURINE AND WEEKLY METHOTREXATE BASED
     Route: 065

REACTIONS (1)
  - Meningitis haemophilus [Fatal]
